FAERS Safety Report 19089364 (Version 2)
Quarter: 2021Q2

REPORT INFORMATION
  Report Type: Report from Study
  Country: UG (occurrence: UG)
  Receive Date: 20210403
  Receipt Date: 20210514
  Transmission Date: 20210717
  Serious: Yes (Hospitalization, Other)
  Sender: FDA-Public Use
  Company Number: UG-CIPLA LTD.-2021UG02475

PATIENT

DRUGS (5)
  1. ARTEMETHER + LUMEFANTRINE [Concomitant]
     Active Substance: ARTEMETHER\LUMEFANTRINE
     Indication: MALARIA
     Dosage: 20 MG + 120 MG, BID
     Route: 065
     Dates: start: 20170728, end: 20170730
  2. LOPINAVIR/RITONAVIR [Suspect]
     Active Substance: LOPINAVIR\RITONAVIR
     Indication: HIV INFECTION
     Dosage: 3 DOSAGE FORM, BID (120MG/30MG)
     Route: 048
     Dates: start: 20170710, end: 20181126
  3. BETNOVATE [Concomitant]
     Active Substance: BETAMETHASONE
     Indication: RASH PAPULAR
     Dosage: UNK
     Route: 065
     Dates: start: 20170710
  4. ABACAVIR/LAMIVUDINE [Suspect]
     Active Substance: ABACAVIR\LAMIVUDINE
     Indication: HIV INFECTION
     Dosage: 1.5 DOSAGE FORM, BID (90MG/45MG)
     Route: 048
     Dates: start: 20170710, end: 20181126
  5. CETRIZINE [Concomitant]
     Active Substance: CETIRIZINE HYDROCHLORIDE
     Indication: RASH PAPULAR
     Dosage: 2.5 MILLIGRAM, UNK
     Route: 065
     Dates: start: 20170710

REACTIONS (3)
  - Hypochromic anaemia [Recovered/Resolved]
  - Idiopathic interstitial pneumonia [Unknown]
  - Malnutrition [Recovered/Resolved]

NARRATIVE: CASE EVENT DATE: 20170710
